FAERS Safety Report 23145878 (Version 1)
Quarter: 2023Q4

REPORT INFORMATION
  Report Type: Report from Study
  Country: DE (occurrence: DE)
  Receive Date: 20231104
  Receipt Date: 20231104
  Transmission Date: 20240110
  Serious: Yes (Congenital Anomaly, Other)
  Sender: FDA-Public Use
  Company Number: DE-VKT-000246

PATIENT
  Age: 42 Week
  Sex: Male

DRUGS (5)
  1. LEVETIRACETAM [Suspect]
     Active Substance: LEVETIRACETAM
     Indication: Foetal exposure during pregnancy
     Route: 064
  2. BUDESONIDE [Concomitant]
     Active Substance: BUDESONIDE
     Indication: Foetal exposure during pregnancy
     Route: 064
  3. IPRATROPIUM BROMIDE [Concomitant]
     Active Substance: IPRATROPIUM BROMIDE\IPRATROPIUM BROMIDE ANHYDROUS
     Indication: Foetal exposure during pregnancy
     Route: 064
  4. FENOTEROL [Concomitant]
     Active Substance: FENOTEROL
     Indication: Foetal exposure during pregnancy
     Route: 064
  5. FOLIC ACID [Concomitant]
     Active Substance: FOLIC ACID
     Indication: Product used for unknown indication
     Route: 065

REACTIONS (3)
  - Hydronephrosis [Unknown]
  - Pancreatic cyst [Unknown]
  - Foetal exposure during pregnancy [Unknown]
